FAERS Safety Report 10011789 (Version 1)
Quarter: 2014Q1

REPORT INFORMATION
  Report Type: Spontaneous
  Country: US (occurrence: None)
  Receive Date: 20140312
  Receipt Date: 20140312
  Transmission Date: 20141002
  Serious: Yes (Hospitalization, Other)
  Sender: FDA-Public Use
  Company Number: 2014STP1000088

PATIENT
  Age: 12 Month
  Sex: Male

DRUGS (7)
  1. ONCASPAR [Suspect]
     Indication: ACUTE LYMPHOCYTIC LEUKAEMIA
     Dosage: X1
     Dates: start: 20140205, end: 20140205
  2. VINCRISTINE SULFATE (VINCRISTINE SULFATE) [Suspect]
     Indication: ACUTE LYMPHOCYTIC LEUKAEMIA
     Route: 042
     Dates: start: 20140202, end: 20140223
  3. DOXORUBICIN [Suspect]
     Indication: ACUTE LYMPHOCYTIC LEUKAEMIA
     Route: 042
     Dates: start: 20140202, end: 20140203
  4. METHOTREXATE SODIUM (METHOTREXATE SODIUM) [Suspect]
     Indication: ACUTE LYMPHOCYTIC LEUKAEMIA
     Dosage: X1
     Route: 042
     Dates: start: 20140204, end: 20140204
  5. METHYLPREDNISOLONE (METHYLPREDNISOLONE) [Suspect]
     Indication: ACUTE LYMPHOCYTIC LEUKAEMIA
     Route: 048
     Dates: start: 20140202, end: 20140223
  6. CYTARABINE (CYTARABINE) [Suspect]
     Indication: ACUTE LYMPHOCYTIC LEUKAEMIA
     Route: 037
     Dates: start: 20140208, end: 20140208
  7. HYDROCORTISONE (HYDROCORTISONE) [Suspect]
     Indication: ACUTE LYMPHOCYTIC LEUKAEMIA
     Dosage: X1
     Route: 037
     Dates: start: 20140208, end: 20140208

REACTIONS (5)
  - Pneumonia [None]
  - Febrile neutropenia [None]
  - Hypotension [None]
  - Pneumomediastinum [None]
  - Deep vein thrombosis [None]
